FAERS Safety Report 7849836-5 (Version None)
Quarter: 2011Q4

REPORT INFORMATION
  Report Type: 
  Country: None (occurrence: None)
  Receive Date: 20111025
  Receipt Date: 20111025
  Transmission Date: 20120403
  Serious: Yes (Hospitalization)
  Sender: FDA-Public Use
  Company Number: None

PATIENT
  Sex: Male
  Weight: 94.3 kg

DRUGS (6)
  1. VINCRISTINE SULFATE [Suspect]
     Dosage: 3.6 MG
  2. CYCLOPHOSPHAMIDE [Suspect]
     Dosage: 1620 MG
  3. DOXORUBICIN HCL [Suspect]
     Dosage: 88 MG
  4. RITUXIMAB (MOAB C2B8 ANTI CD20, CHIMERIC) [Suspect]
     Dosage: 810 MG
  5. PREDNISONE [Suspect]
     Dosage: 645 MG
  6. ETOPOSIDE [Suspect]
     Dosage: 440 MG

REACTIONS (3)
  - STOMATITIS [None]
  - WHITE BLOOD CELL COUNT DECREASED [None]
  - PYREXIA [None]
